FAERS Safety Report 26020175 (Version 1)
Quarter: 2025Q4

REPORT INFORMATION
  Report Type: Spontaneous
  Country: US (occurrence: US)
  Receive Date: 20251110
  Receipt Date: 20251110
  Transmission Date: 20260118
  Serious: No
  Sender: TENSHI KAIZEN PRIVATE LIMITED
  Company Number: US-TENSHI KAIZEN PRIVATE LIMITED-2025TK000128

PATIENT
  Age: 54 Year
  Sex: Female
  Weight: 74.8 kg

DRUGS (3)
  1. LORATADINE [Suspect]
     Active Substance: LORATADINE
     Indication: Product used for unknown indication
     Dosage: TOOK TWO TABLETS
     Route: 048
     Dates: start: 20250818
  2. LORATADINE [Suspect]
     Active Substance: LORATADINE
     Dosage: TOOK TWO TABLETS
     Route: 048
     Dates: start: 20250824
  3. ATORVASTATIN [Concomitant]
     Active Substance: ATORVASTATIN
     Indication: Blood cholesterol increased
     Dosage: UNK
     Route: 065

REACTIONS (3)
  - Drug ineffective [Unknown]
  - Intentional product misuse [Unknown]
  - Extra dose administered [Unknown]
